FAERS Safety Report 14670349 (Version 2)
Quarter: 2018Q2

REPORT INFORMATION
  Report Type: Spontaneous
  Country: US (occurrence: US)
  Receive Date: 20180322
  Receipt Date: 20180622
  Transmission Date: 20180711
  Serious: No
  Sender: FDA-Public Use
  Company Number: US-ADAMAS PHARMA, LLC-2017ADA00035

PATIENT
  Sex: Female

DRUGS (9)
  1. TOPIRAMATE. [Concomitant]
     Active Substance: TOPIRAMATE
  2. GOCOVRI [Suspect]
     Active Substance: AMANTADINE
     Indication: DYSKINESIA
     Dosage: 137 MG, 1X/DAY AT BEDTIME
     Route: 048
     Dates: start: 20171201, end: 20171207
  3. LEVOTHYROXINE. [Concomitant]
     Active Substance: LEVOTHYROXINE
  4. VITAMIN D [Concomitant]
     Active Substance: CHOLECALCIFEROL
  5. GOCOVRI [Suspect]
     Active Substance: AMANTADINE
     Dosage: 274 MG, 1X/DAY EVERY NIGHT
     Route: 048
     Dates: start: 20171208
  6. PREMARIN [Concomitant]
     Active Substance: ESTROGENS, CONJUGATED
  7. SINEMET [Concomitant]
     Active Substance: CARBIDOPA\LEVODOPA
     Dosage: UNK
  8. PANTOPRAZOLE [Concomitant]
     Active Substance: PANTOPRAZOLE
  9. SERTRALINE [Concomitant]
     Active Substance: SERTRALINE HYDROCHLORIDE
     Dosage: INCREASED DOSE (UNSPECIFIED)

REACTIONS (5)
  - Depression [Recovering/Resolving]
  - Dry mouth [Not Recovered/Not Resolved]
  - Constipation [Not Recovered/Not Resolved]
  - Medication error [Recovered/Resolved]
  - Faecaloma [Not Recovered/Not Resolved]

NARRATIVE: CASE EVENT DATE: 2017
